FAERS Safety Report 11037550 (Version 4)
Quarter: 2015Q2

REPORT INFORMATION
  Report Type: Spontaneous
  Country: JP (occurrence: None)
  Receive Date: 20150414
  Receipt Date: 20150624
  Transmission Date: 20150821
  Serious: Yes (Death, Other)
  Sender: FDA-Public Use
  Company Number: 2015RN000019

PATIENT

DRUGS (1)
  1. ZOVIRAX [Suspect]
     Active Substance: ACYCLOVIR
     Indication: PRODUCT USED FOR UNKNOWN INDICATION
     Route: 048

REACTIONS (3)
  - Hepatic failure [None]
  - Hyperbilirubinaemia [None]
  - Plasma cell myeloma [None]
